FAERS Safety Report 7109435-X (Version None)
Quarter: 2010Q4

REPORT INFORMATION
  Report Type: 
  Country: None (occurrence: None)
  Receive Date: 20101118
  Receipt Date: 20101108
  Transmission Date: 20110411
  Serious: No
  Sender: FDA-Public Use
  Company Number: US-BIOGENIDEC-2010BI039287

PATIENT
  Age: 36 Year
  Sex: Female

DRUGS (1)
  1. TYSABRI [Suspect]
     Indication: MULTIPLE SCLEROSIS
     Route: 042
     Dates: start: 20100601, end: 20100917

REACTIONS (6)
  - BACK PAIN [None]
  - DIPLOPIA [None]
  - DYSPNOEA [None]
  - INSOMNIA [None]
  - MEMORY IMPAIRMENT [None]
  - NECK PAIN [None]
